FAERS Safety Report 11318289 (Version 8)
Quarter: 2017Q2

REPORT INFORMATION
  Report Type: Report from Study
  Country: AU (occurrence: AU)
  Receive Date: 20150728
  Receipt Date: 20170509
  Transmission Date: 20170829
  Serious: Yes (Death, Hospitalization, Other)
  Sender: FDA-Public Use
  Company Number: PHHY2015AU073991

PATIENT
  Age: 87 Year
  Sex: Male

DRUGS (3)
  1. PANADOL [Concomitant]
     Active Substance: ACETAMINOPHEN
     Indication: PRODUCT USED FOR UNKNOWN INDICATION
     Dosage: UNK
     Route: 065
  2. TARGIN [Concomitant]
     Active Substance: NALOXONE HYDROCHLORIDE\OXYCODONE HYDROCHLORIDE
     Indication: PRODUCT USED FOR UNKNOWN INDICATION
     Dosage: UNK
     Route: 065
  3. SANDOSTATIN LAR DEPOT [Suspect]
     Active Substance: OCTREOTIDE ACETATE
     Indication: NEUROENDOCRINE TUMOUR
     Dosage: 10 MG, UNK
     Route: 030
     Dates: start: 20141103

REACTIONS (10)
  - Chest pain [Unknown]
  - Full blood count decreased [Unknown]
  - Malaise [Unknown]
  - Dysphagia [Unknown]
  - Myelodysplastic syndrome [Fatal]
  - Weight decreased [Unknown]
  - Anaemia [Recovering/Resolving]
  - Feeling abnormal [Not Recovered/Not Resolved]
  - Second primary malignancy [Fatal]
  - Dizziness [Not Recovered/Not Resolved]

NARRATIVE: CASE EVENT DATE: 20150526
